FAERS Safety Report 9299293 (Version 1)
Quarter: 2013Q2

REPORT INFORMATION
  Report Type: Spontaneous
  Country: FR (occurrence: FR)
  Receive Date: 20130520
  Receipt Date: 20130520
  Transmission Date: 20140414
  Serious: Yes (Hospitalization)
  Sender: FDA-Public Use
  Company Number: PHHY2013FR049016

PATIENT
  Age: 78 Year
  Sex: Female

DRUGS (12)
  1. TAREG [Suspect]
     Dosage: 80 MG, QD
     Route: 048
     Dates: end: 20130131
  2. TAREG [Suspect]
     Dosage: UNK UKN, UNK
     Dates: start: 20130201
  3. FUROSEMIDE [Suspect]
     Dosage: UNK UKN, UNK
     Route: 048
     Dates: end: 20130131
  4. PARACETAMOL SANDOZ [Suspect]
     Dosage: UNK UKN, UNK
     Route: 048
     Dates: end: 20130131
  5. CELEBREX [Suspect]
     Dosage: 200 MG, QD
     Route: 048
     Dates: end: 20130131
  6. PARKINANE [Suspect]
     Dosage: 2 DF, QD
     Route: 048
     Dates: end: 20130131
  7. HEXAQUINE [Suspect]
     Dosage: UNK UKN, UNK
     Route: 048
     Dates: end: 20130131
  8. LEVOTHYROX [Concomitant]
  9. ALDACTONE [Concomitant]
  10. AVLOCARDYL [Concomitant]
  11. JANUMET [Concomitant]
  12. STILNOX [Concomitant]
     Dosage: 10 MG, UNK

REACTIONS (1)
  - Renal failure [Recovered/Resolved]
